FAERS Safety Report 24872716 (Version 7)
Quarter: 2025Q3

REPORT INFORMATION
  Report Type: Spontaneous
  Country: EU (occurrence: EU)
  Receive Date: 20250122
  Receipt Date: 20250814
  Transmission Date: 20251020
  Serious: Yes (Hospitalization, Other)
  Sender: AUROBINDO
  Company Number: EU-SANDOZ-SDZ2025ES000856

PATIENT
  Age: 31 Year
  Sex: Female

DRUGS (6)
  1. ARIPIPRAZOLE [Suspect]
     Active Substance: ARIPIPRAZOLE
     Indication: Psychiatric symptom
     Dosage: 15 MILLIGRAM, ONCE A DAY (15 MG, QD)
     Route: 065
  2. ARIPIPRAZOLE [Suspect]
     Active Substance: ARIPIPRAZOLE
     Indication: Antidepressant therapy
  3. ARIPIPRAZOLE [Suspect]
     Active Substance: ARIPIPRAZOLE
     Indication: Depression
  4. VENLAFAXINE [Concomitant]
     Active Substance: VENLAFAXINE HYDROCHLORIDE
     Indication: Psychiatric symptom
     Dosage: 225 MILLIGRAM, ONCE A DAY [225 MG, QD]
     Route: 065
  5. VENLAFAXINE [Concomitant]
     Active Substance: VENLAFAXINE HYDROCHLORIDE
     Indication: Depression
     Dosage: 150 MILLIGRAM, ONCE A DAY [150 MG, QD]
     Route: 065
  6. DIAZEPAM [Concomitant]
     Active Substance: DIAZEPAM
     Indication: Psychiatric symptom
     Dosage: 10 MILLIGRAM, ONCE A DAY [10 MG, QD]
     Route: 065

REACTIONS (9)
  - Suicidal ideation [Recovered/Resolved]
  - Unmasking of previously unidentified disease [Recovered/Resolved]
  - Depressive symptom [Recovered/Resolved]
  - Huntington^s disease [Recovering/Resolving]
  - Extrapyramidal disorder [Recovering/Resolving]
  - Chorea [Recovering/Resolving]
  - Posture abnormal [Recovering/Resolving]
  - Dysarthria [Recovering/Resolving]
  - Coordination abnormal [Recovering/Resolving]
